FAERS Safety Report 5332940-3 (Version None)
Quarter: 2007Q2

REPORT INFORMATION
  Report Type: 
  Country: None (occurrence: None)
  Receive Date: 20070306
  Receipt Date: 20060905
  Transmission Date: 20071010
  Serious: Yes (Other)
  Sender: FDA-Public Use
  Company Number: A03200605554

PATIENT
  Age: 72 Year
  Sex: Male
  Weight: 72.56 kg

DRUGS (4)
  1. PLAVIX [Suspect]
     Indication: CORONARY ARTERY OCCLUSION
     Dosage: 75 MG QD - ORAL
     Route: 048
     Dates: start: 20060807, end: 20060830
  2. EZETIMIBE - SIMVASTATIN [Concomitant]
  3. FLUTICASONE PROPIONATE [Concomitant]
  4. AZELASTINE HCL [Concomitant]

REACTIONS (4)
  - ANGIOEDEMA [None]
  - MYALGIA [None]
  - PHARYNGOLARYNGEAL PAIN [None]
  - PRURITUS [None]
